FAERS Safety Report 16865804 (Version 1)
Quarter: 2019Q3

REPORT INFORMATION
  Report Type: Report from Study
  Country: IT (occurrence: IT)
  Receive Date: 20190930
  Receipt Date: 20190930
  Transmission Date: 20191005
  Serious: Yes (Other)
  Sender: FDA-Public Use
  Company Number: IT-TEVA-2019-IT-1114065

PATIENT
  Age: 52 Year
  Sex: Female
  Weight: 52 kg

DRUGS (3)
  1. AVASTIN [Concomitant]
     Active Substance: BEVACIZUMAB
     Indication: OVARIAN CANCER
     Dosage: 780 MG PER 1 CYCLICAL
     Dates: start: 20190514
  2. PACLITAXEL TEVA 6 MG/ML, CONCENTRATO PER SOLUZIONE PER INFUSIONE [Suspect]
     Active Substance: PACLITAXEL
     Indication: OVARIAN CANCER
     Dosage: 273 MG PER 1 CYCLICAL
     Route: 042
     Dates: start: 20190514, end: 20190625
  3. CARBOPLATINO TEVA 10 MG/ML [Concomitant]
     Active Substance: CARBOPLATIN
     Indication: OVARIAN CANCER
     Dosage: 534.2 MG PER 1 CYCLICAL
     Dates: start: 20190514

REACTIONS (3)
  - Dyspnoea [Recovered/Resolved]
  - Back pain [Recovered/Resolved]
  - Anaphylactoid reaction [Recovered/Resolved]

NARRATIVE: CASE EVENT DATE: 20190625
